FAERS Safety Report 7048005-9 (Version None)
Quarter: 2010Q4

REPORT INFORMATION
  Report Type: 
  Country: None (occurrence: None)
  Receive Date: 20101015
  Receipt Date: 20101008
  Transmission Date: 20110411
  Serious: Yes (Other)
  Sender: FDA-Public Use
  Company Number: A0885663A

PATIENT
  Age: 30 Year
  Sex: Female

DRUGS (3)
  1. LAMICTAL [Suspect]
     Indication: BIPOLAR DISORDER
     Dosage: 100MG PER DAY
     Route: 048
     Dates: start: 20100401, end: 20100724
  2. MOTRIN [Concomitant]
  3. FENTANYL [Concomitant]

REACTIONS (11)
  - ANAEMIA [None]
  - BLINDNESS [None]
  - CHEILITIS [None]
  - EYE INFLAMMATION [None]
  - HEAT RASH [None]
  - LIP SWELLING [None]
  - LYMPHADENOPATHY [None]
  - MOUTH ULCERATION [None]
  - PYREXIA [None]
  - RASH [None]
  - WHEEZING [None]
